FAERS Safety Report 19420373 (Version 1)
Quarter: 2021Q2

REPORT INFORMATION
  Report Type: Spontaneous
  Country: US (occurrence: US)
  Receive Date: 20210615
  Receipt Date: 20210615
  Transmission Date: 20210717
  Serious: Yes (Other)
  Sender: FDA-Public Use
  Company Number: US-MALLINCKRODT PHARMACEUTICALS-T202102510

PATIENT
  Age: 48 Year
  Sex: Female

DRUGS (7)
  1. PREDNISONE. [Concomitant]
     Active Substance: PREDNISONE
     Indication: OCULAR SARCOIDOSIS
     Dosage: UNK
     Route: 065
  2. MYCOPHENOLATE MOFETIL. [Concomitant]
     Active Substance: MYCOPHENOLATE MOFETIL
     Indication: OCULAR SARCOIDOSIS
     Dosage: UNK
     Route: 065
  3. PREDNISOLONE ACETATE. [Concomitant]
     Active Substance: PREDNISOLONE ACETATE
     Indication: PULMONARY SARCOIDOSIS
     Dosage: UNK
     Route: 061
  4. H.P. ACTHAR [Suspect]
     Active Substance: CORTICOTROPIN
     Indication: UVEITIS
  5. H.P. ACTHAR [Suspect]
     Active Substance: CORTICOTROPIN
     Indication: OCULAR SARCOIDOSIS
     Dosage: 80 UNITS TWICE WEEKLY, 24 MONTHS (INTERMITTENT)
     Route: 058
  6. METHOTREXATE. [Concomitant]
     Active Substance: METHOTREXATE
     Indication: OCULAR SARCOIDOSIS
     Dosage: UNK
     Route: 065
  7. METHYLPREDNISOLONE. [Concomitant]
     Active Substance: METHYLPREDNISOLONE
     Indication: PULMONARY SARCOIDOSIS
     Dosage: 8 MG TO 10 MG DAILY (INTERMITTENT THERAPY)
     Route: 065

REACTIONS (6)
  - Condition aggravated [Unknown]
  - Therapeutic product effect incomplete [Unknown]
  - Ocular sarcoidosis [Unknown]
  - Hypertensive emergency [Unknown]
  - Renal failure [Unknown]
  - Skin hyperpigmentation [Unknown]
